FAERS Safety Report 6667145-7 (Version None)
Quarter: 2010Q2

REPORT INFORMATION
  Report Type: 
  Country: None (occurrence: None)
  Receive Date: 20100405
  Receipt Date: 20100325
  Transmission Date: 20101027
  Serious: Yes (Death)
  Sender: FDA-Public Use
  Company Number: US-WYE-H14330010

PATIENT
  Age: 65 Year
  Sex: Female

DRUGS (7)
  1. TYGACIL [Suspect]
     Indication: SEPSIS
     Route: 042
     Dates: start: 20100316, end: 20100301
  2. TYGACIL [Suspect]
     Dates: start: 20100316, end: 20100316
  3. MYCAMINE [Concomitant]
     Dosage: UNKNOWN
  4. METRONIDAZOLE [Concomitant]
     Dosage: UNKNOWN
  5. ZOSYN [Concomitant]
     Dosage: UNKNOWN
  6. DORIPENEM [Concomitant]
     Dosage: UNKNOWN
     Dates: start: 20100315
  7. ZYVOX [Concomitant]
     Dosage: UNKNOWN

REACTIONS (6)
  - ALANINE AMINOTRANSFERASE INCREASED [None]
  - ASPARTATE AMINOTRANSFERASE INCREASED [None]
  - CARDIO-RESPIRATORY ARREST [None]
  - HEPATIC ENCEPHALOPATHY [None]
  - HEPATIC INFARCTION [None]
  - ISCHAEMIC CARDIOMYOPATHY [None]
